FAERS Safety Report 5462967-2 (Version None)
Quarter: 2007Q3

REPORT INFORMATION
  Report Type: 
  Country: None (occurrence: None)
  Receive Date: 20070920
  Receipt Date: 20070723
  Transmission Date: 20080115
  Serious: No
  Sender: FDA-Public Use
  Company Number: US-BAUSCH-2007BL002538

PATIENT
  Age: 36 Year
  Sex: Male

DRUGS (2)
  1. ZYLET [Suspect]
     Indication: KERATOCONJUNCTIVITIS SICCA
     Route: 047
     Dates: start: 20070714, end: 20070720
  2. ZYLET [Suspect]
     Indication: PUNCTATE KERATITIS
     Route: 047
     Dates: start: 20070714, end: 20070720

REACTIONS (3)
  - CONJUNCTIVAL DISORDER [None]
  - CONJUNCTIVAL HYPERAEMIA [None]
  - EYE PAIN [None]
